FAERS Safety Report 7535816-6 (Version None)
Quarter: 2011Q2

REPORT INFORMATION
  Report Type: 
  Country: None (occurrence: None)
  Receive Date: 20110607
  Receipt Date: 20110607
  Transmission Date: 20111010
  Serious: Yes (Other)
  Sender: FDA-Public Use
  Company Number: None

PATIENT
  Age: 69 Year
  Sex: Female
  Weight: 48.5 kg

DRUGS (1)
  1. BENICAR [Suspect]
     Indication: HYPERTENSION
     Dosage: 1 TABLET QD PO
     Route: 048
     Dates: start: 20081124, end: 20110502

REACTIONS (5)
  - COLITIS [None]
  - DIARRHOEA [None]
  - ENDOSCOPY ABNORMAL [None]
  - WEIGHT DECREASED [None]
  - PLEURISY [None]
